FAERS Safety Report 5759892-6 (Version None)
Quarter: 2008Q2

REPORT INFORMATION
  Report Type: 
  Country: None (occurrence: None)
  Receive Date: 20080605
  Receipt Date: 20080521
  Transmission Date: 20081010
  Serious: Yes (Hospitalization, Other)
  Sender: FDA-Public Use
  Company Number: US-BAYER-200823888NA

PATIENT
  Age: 39 Year
  Sex: Female

DRUGS (2)
  1. BETASERON [Suspect]
     Indication: DRUG USE FOR UNKNOWN INDICATION
     Route: 058
  2. AVONEX [Concomitant]

REACTIONS (4)
  - ABSCESS LIMB [None]
  - ERYTHEMA [None]
  - INJECTION SITE ATROPHY [None]
  - SWELLING [None]
